FAERS Safety Report 7288061-6 (Version None)
Quarter: 2011Q1

REPORT INFORMATION
  Report Type: 
  Country: None (occurrence: None)
  Receive Date: 20110211
  Receipt Date: 20110204
  Transmission Date: 20110831
  Serious: Yes (Death, Life-Threatening, Hospitalization, Other)
  Sender: FDA-Public Use
  Company Number: PHHY2008JP02293

PATIENT
  Age: 64 Year
  Sex: Male

DRUGS (5)
  1. CYCLOSPORINE [Suspect]
     Indication: BONE MARROW TRANSPLANT
     Dates: start: 20070329
  2. METHYLPREDNISOLONE [Concomitant]
     Indication: GRAFT VERSUS HOST DISEASE
     Dosage: 2 MG/KG
  3. METHOTREXATE [Suspect]
     Indication: BONE MARROW TRANSPLANT
     Dates: start: 20070329
  4. PREDONINE [Concomitant]
     Indication: GRAFT VERSUS HOST DISEASE
     Dosage: 20 MG/D
  5. RITUXIMAB [Concomitant]

REACTIONS (11)
  - GASTROINTESTINAL OEDEMA [None]
  - GRAFT VERSUS HOST DISEASE [None]
  - ABDOMINAL PAIN LOWER [None]
  - GASTROINTESTINAL PERFORATION [None]
  - INTESTINAL ULCER [None]
  - CYTOMEGALOVIRUS COLITIS [None]
  - MESENTERITIS [None]
  - ACUTE MYELOID LEUKAEMIA [None]
  - EPSTEIN-BARR VIRUS ASSOCIATED LYMPHOPROLIFERATIVE DISORDER [None]
  - B-LYMPHOCYTE COUNT INCREASED [None]
  - DIARRHOEA [None]
